FAERS Safety Report 10272363 (Version 1)
Quarter: 2014Q2

REPORT INFORMATION
  Report Type: Spontaneous
  Country: US (occurrence: None)
  Receive Date: 20140630
  Receipt Date: 20140630
  Transmission Date: 20141212
  Serious: No
  Sender: FDA-Public Use
  Company Number: None

PATIENT
  Age: 43 Year
  Sex: Female
  Weight: 137.44 kg

DRUGS (1)
  1. SAVELLA 50 MG FOREST PHARMACEUTICALS, INC [Suspect]
     Indication: FIBROMYALGIA
     Route: 048

REACTIONS (5)
  - Heart rate increased [None]
  - Blood glucose increased [None]
  - Palpitations [None]
  - Agitation [None]
  - Anger [None]
